FAERS Safety Report 21414850 (Version 2)
Quarter: 2022Q4

REPORT INFORMATION
  Report Type: Report from Study
  Country: US (occurrence: None)
  Receive Date: 20221006
  Receipt Date: 20221117
  Transmission Date: 20230112
  Serious: Yes (Other)
  Sender: FDA-Public Use
  Company Number: US-Merck Healthcare KGaA-9355022

PATIENT
  Age: 54 Year
  Sex: Male

DRUGS (2)
  1. REBIF [Suspect]
     Active Substance: INTERFERON BETA-1A
     Indication: Multiple sclerosis
     Route: 058
     Dates: start: 20101212
  2. REBIF [Suspect]
     Active Substance: INTERFERON BETA-1A
     Dosage: REBIJECT II/ MANUAL
     Route: 058

REACTIONS (4)
  - Small cell lung cancer [Unknown]
  - Non-small cell lung cancer stage III [Unknown]
  - Magnetic resonance imaging head abnormal [Unknown]
  - Off label use [Unknown]

NARRATIVE: CASE EVENT DATE: 20220501
